FAERS Safety Report 20869866 (Version 1)
Quarter: 2022Q2

REPORT INFORMATION
  Report Type: Spontaneous
  Country: US (occurrence: US)
  Receive Date: 20220525
  Receipt Date: 20220525
  Transmission Date: 20220721
  Serious: No
  Sender: FDA-Public Use
  Company Number: US-SUN PHARMACEUTICAL INDUSTRIES LTD-2021R1-321980

PATIENT
  Sex: Male

DRUGS (2)
  1. BROMSITE [Suspect]
     Active Substance: BROMFENAC SODIUM
     Indication: Product used for unknown indication
     Dosage: 2 DOSE, DAILY
     Route: 065
  2. BROMSITE [Suspect]
     Active Substance: BROMFENAC SODIUM
     Dosage: 1 DOSE, DAILY
     Route: 065

REACTIONS (3)
  - Underdose [Unknown]
  - Product quality issue [Unknown]
  - Product dispensing issue [Unknown]
